FAERS Safety Report 6827973-1 (Version None)
Quarter: 2010Q3

REPORT INFORMATION
  Report Type: 
  Country: None (occurrence: None)
  Receive Date: 20100708
  Receipt Date: 20100708
  Transmission Date: 20110219
  Serious: Yes (Other)
  Sender: FDA-Public Use
  Company Number: None

PATIENT
  Age: 17 Year
  Sex: Male
  Weight: 87.2 kg

DRUGS (6)
  1. XOLAIR [Suspect]
     Indication: ASTHMA
     Dosage: 375 MG EVERY 2 WEEKS SQ
     Route: 058
     Dates: start: 20050501, end: 20100628
  2. XOLAIR [Suspect]
     Indication: HYPERSENSITIVITY
     Dosage: 375 MG EVERY 2 WEEKS SQ
     Route: 058
     Dates: start: 20050501, end: 20100628
  3. ADVAIR DISKUS 100/50 [Concomitant]
  4. ALBUTEROL [Concomitant]
  5. PREDNISONE [Concomitant]
  6. NASONEX [Concomitant]

REACTIONS (5)
  - CARDIOMYOPATHY [None]
  - EJECTION FRACTION DECREASED [None]
  - ELECTROCARDIOGRAM ABNORMAL [None]
  - HEART RATE IRREGULAR [None]
  - LEFT VENTRICULAR DYSFUNCTION [None]
